FAERS Safety Report 6182285-7 (Version None)
Quarter: 2009Q2

REPORT INFORMATION
  Report Type: 
  Country: None (occurrence: None)
  Receive Date: 20090505
  Receipt Date: 20090505
  Transmission Date: 20091009
  Serious: Yes (Disabling, Other)
  Sender: FDA-Public Use
  Company Number: None

PATIENT
  Age: 11 Year
  Sex: Female
  Weight: 47.6277 kg

DRUGS (1)
  1. DAYTRANA [Suspect]
     Indication: ATTENTION DEFICIT/HYPERACTIVITY DISORDER
     Dosage: 10 MGS. OVER 9 HOURS I PATCH DAILY TRANSDERMAL
     Route: 062
     Dates: start: 20081101, end: 20090505

REACTIONS (1)
  - TRICHOTILLOMANIA [None]
